FAERS Safety Report 7979193-5 (Version None)
Quarter: 2011Q4

REPORT INFORMATION
  Report Type: 
  Country: None (occurrence: None)
  Receive Date: 20111129
  Receipt Date: 20110628
  Transmission Date: 20120403
  Serious: Yes (Other)
  Sender: FDA-Public Use
  Company Number: PHHY2011US54437

PATIENT
  Age: 59 Year
  Sex: Male
  Weight: 95 kg

DRUGS (1)
  1. AFINITOR [Suspect]
     Indication: RENAL CELL CARCINOMA
     Dosage: 10 MG DAILY, ORAL, 05 MG DAILY, ORAL
     Route: 048
     Dates: start: 20110414, end: 20110529

REACTIONS (6)
  - DRY SKIN [None]
  - PRURITUS [None]
  - RASH ERYTHEMATOUS [None]
  - RASH PRURITIC [None]
  - RASH MACULO-PAPULAR [None]
  - RASH [None]
